FAERS Safety Report 25554580 (Version 1)
Quarter: 2025Q3

REPORT INFORMATION
  Report Type: Spontaneous
  Country: US (occurrence: US)
  Receive Date: 20250715
  Receipt Date: 20250715
  Transmission Date: 20251021
  Serious: No
  Sender: NOVO NORDISK
  Company Number: US-NOVOPROD-1257550

PATIENT
  Age: 72 Year
  Sex: Female

DRUGS (3)
  1. OZEMPIC [Suspect]
     Active Substance: SEMAGLUTIDE
     Indication: Glucose tolerance impaired
     Route: 058
     Dates: start: 2022, end: 20240212
  2. OZEMPIC [Suspect]
     Active Substance: SEMAGLUTIDE
     Dates: start: 202406, end: 20240628
  3. PROGESTERONE [Concomitant]
     Active Substance: PROGESTERONE
     Indication: Glucose tolerance impaired

REACTIONS (14)
  - Lip dry [Unknown]
  - Dry mouth [Unknown]
  - Thirst [Unknown]
  - Peripheral swelling [Unknown]
  - Urinary tract infection [Unknown]
  - Disturbance in attention [Unknown]
  - Unevaluable event [Unknown]
  - Dysania [Unknown]
  - Blood pressure systolic increased [Unknown]
  - Abdominal pain [Not Recovered/Not Resolved]
  - Diarrhoea [Not Recovered/Not Resolved]
  - Dizziness [Unknown]
  - Fatigue [Unknown]
  - Off label use [Unknown]

NARRATIVE: CASE EVENT DATE: 20240601
